FAERS Safety Report 13005099 (Version 2)
Quarter: 2017Q1

REPORT INFORMATION
  Report Type: Spontaneous
  Country: US (occurrence: US)
  Receive Date: 20161207
  Receipt Date: 20170120
  Transmission Date: 20170428
  Serious: Yes (Other)
  Sender: FDA-Public Use
  Company Number: US-ROCHE-1863939

PATIENT
  Sex: Male

DRUGS (2)
  1. AVASTIN [Suspect]
     Active Substance: BEVACIZUMAB
     Indication: MACULAR OEDEMA
     Route: 050
  2. AVASTIN [Suspect]
     Active Substance: BEVACIZUMAB
     Indication: RETINAL VEIN OCCLUSION

REACTIONS (4)
  - Product quality issue [Unknown]
  - Off label use [Unknown]
  - Manufacturing materials contamination [Unknown]
  - Vitreous floaters [Not Recovered/Not Resolved]
